FAERS Safety Report 6298090-7 (Version None)
Quarter: 2009Q3

REPORT INFORMATION
  Report Type: 
  Country: None (occurrence: None)
  Receive Date: 20090804
  Receipt Date: 20090804
  Transmission Date: 20100115
  Serious: Yes (Death, Hospitalization, Other)
  Sender: FDA-Public Use
  Company Number: None

PATIENT
  Age: 81 Year
  Sex: Male
  Weight: 72.5755 kg

DRUGS (7)
  1. CEPHALEXIN [Suspect]
     Indication: CELLULITIS
     Dosage: 500MG FOUR TIMES A DAY
     Dates: start: 20090707, end: 20090707
  2. METOPROLOL TARTRATE [Concomitant]
  3. LIPITOR [Concomitant]
  4. PLAVIX [Concomitant]
  5. PANTOPRAZOLE SODIUM [Concomitant]
  6. ADVAIR HFA [Concomitant]
  7. VENTOLIN [Concomitant]

REACTIONS (7)
  - COMA [None]
  - DYSPNOEA [None]
  - LOSS OF CONSCIOUSNESS [None]
  - PULSE ABSENT [None]
  - RASH MACULAR [None]
  - RASH PRURITIC [None]
  - RESPIRATORY ARREST [None]
